FAERS Safety Report 7426123-0 (Version None)
Quarter: 2011Q2

REPORT INFORMATION
  Report Type: 
  Country: None (occurrence: None)
  Receive Date: 20110420
  Receipt Date: 20110408
  Transmission Date: 20111010
  Serious: Yes (Other)
  Sender: FDA-Public Use
  Company Number: PHFR2011GB00483

PATIENT
  Sex: Male

DRUGS (3)
  1. VALPROATE SODIUM [Concomitant]
     Route: 048
  2. CLOZARIL [Suspect]
     Indication: SCHIZOPHRENIA
     Dosage: 450 MG, UNK
     Route: 048
     Dates: start: 20100701
  3. CLOZARIL [Suspect]
     Dosage: 100 MG/5 ML
     Dates: start: 20101224

REACTIONS (4)
  - NEUTROPENIA [None]
  - WHITE BLOOD CELL COUNT DECREASED [None]
  - NASOPHARYNGITIS [None]
  - H1N1 INFLUENZA [None]
